FAERS Safety Report 18575824 (Version 1)
Quarter: 2020Q4

REPORT INFORMATION
  Report Type: Spontaneous
  Country: US (occurrence: US)
  Receive Date: 20201203
  Receipt Date: 20201203
  Transmission Date: 20210114
  Serious: Yes (Hospitalization, Other)
  Sender: FDA-Public Use
  Company Number: US-PURDUE-USA-2020-0174779

PATIENT
  Age: 32 Year
  Sex: Female

DRUGS (5)
  1. TRAMADOL. [Suspect]
     Active Substance: TRAMADOL
     Indication: PRODUCT USED FOR UNKNOWN INDICATION
  2. OXYCODONE HCL CR TABLETS (SIMILAR TO NDA 22-272) [Suspect]
     Active Substance: OXYCODONE HYDROCHLORIDE
     Indication: PRODUCT USED FOR UNKNOWN INDICATION
     Route: 048
  3. HYDROMORPHONE HCL (SIMILAR TO 19-892) [Suspect]
     Active Substance: HYDROMORPHONE HYDROCHLORIDE
     Indication: PRODUCT USED FOR UNKNOWN INDICATION
     Route: 048
  4. HYDROCODONE BITARTRATE AND ACETAMINOPHEN [Suspect]
     Active Substance: ACETAMINOPHEN\HYDROCODONE BITARTRATE
     Indication: PRODUCT USED FOR UNKNOWN INDICATION
     Route: 048
  5. OXYCONTIN [Suspect]
     Active Substance: OXYCODONE HYDROCHLORIDE
     Indication: PRODUCT USED FOR UNKNOWN INDICATION
     Route: 048

REACTIONS (22)
  - Drug abuse [Unknown]
  - Jejunostomy [Unknown]
  - Vomiting [None]
  - Gastroenterostomy [None]
  - Abdominal pain [Unknown]
  - Small intestinal obstruction [Unknown]
  - Gastroenterostomy [Unknown]
  - Pelvic abscess [Unknown]
  - Internal hernia [Unknown]
  - Nausea [None]
  - Dehydration [Unknown]
  - Malnutrition [None]
  - Migraine with aura [Unknown]
  - Obstruction gastric [None]
  - Ulcer [None]
  - Cystitis [None]
  - Affective disorder [None]
  - Affective disorder [None]
  - Pain in extremity [None]
  - Nodule [Unknown]
  - Foreign body reaction [None]
  - Abscess limb [Unknown]

NARRATIVE: CASE EVENT DATE: 20150918
